FAERS Safety Report 9729166 (Version 2)
Quarter: 2014Q2

REPORT INFORMATION
  Report Type: Spontaneous
  Country: US (occurrence: US)
  Receive Date: 20131204
  Receipt Date: 20140521
  Transmission Date: 20141212
  Serious: No
  Sender: FDA-Public Use
  Company Number: US-009507513-1311USA011876

PATIENT
  Sex: Male

DRUGS (1)
  1. PROPECIA [Suspect]
     Indication: ANDROGENETIC ALOPECIA
     Dosage: 1 MG, QD
     Route: 048
     Dates: start: 20100111, end: 20100310

REACTIONS (37)
  - Cognitive disorder [Unknown]
  - Orgasmic sensation decreased [Unknown]
  - Sexual dysfunction [Unknown]
  - Gynaecomastia [Unknown]
  - Erectile dysfunction [Unknown]
  - Semen volume decreased [Unknown]
  - Loss of libido [Not Recovered/Not Resolved]
  - Infertility [Unknown]
  - Muscle atrophy [Unknown]
  - Genital disorder male [Unknown]
  - Hypoaesthesia [Unknown]
  - Testicular pain [Unknown]
  - Hip deformity [Unknown]
  - Hypogonadism [Unknown]
  - Depression [Not Recovered/Not Resolved]
  - Anxiety [Not Recovered/Not Resolved]
  - Insomnia [Unknown]
  - Mood altered [Unknown]
  - Muscular weakness [Unknown]
  - Polyuria [Unknown]
  - Dehydration [Unknown]
  - Weight decreased [Unknown]
  - Penile pain [Unknown]
  - Pollakiuria [Unknown]
  - Micturition urgency [Unknown]
  - Varicocele repair [Unknown]
  - Varicocele [Unknown]
  - Swelling face [Unknown]
  - Thirst [Unknown]
  - Muscle contractions involuntary [Unknown]
  - Alopecia [Unknown]
  - Dysphonia [Unknown]
  - Skin atrophy [Unknown]
  - Dry skin [Unknown]
  - Neuropathy peripheral [Unknown]
  - Fat redistribution [Unknown]
  - Panic attack [Unknown]
